FAERS Safety Report 19873958 (Version 3)
Quarter: 2022Q2

REPORT INFORMATION
  Report Type: Report from Study
  Country: ES (occurrence: ES)
  Receive Date: 20210923
  Receipt Date: 20220421
  Transmission Date: 20220721
  Serious: Yes (Death)
  Sender: FDA-Public Use
  Company Number: ES-VIIV HEALTHCARE LIMITED-ES2021199017

PATIENT
  Age: 51 Year
  Sex: Male

DRUGS (2)
  1. ABACAVIR SULFATE\DOLUTEGRAVIR SODIUM\LAMIVUDINE [Suspect]
     Active Substance: ABACAVIR SULFATE\DOLUTEGRAVIR SODIUM\LAMIVUDINE
     Indication: HIV infection
     Dosage: 1 DF, QD (INDUCTION PHASE)
     Route: 048
     Dates: start: 20170315, end: 20170801
  2. ABACAVIR SULFATE\DOLUTEGRAVIR SODIUM\LAMIVUDINE [Suspect]
     Active Substance: ABACAVIR SULFATE\DOLUTEGRAVIR SODIUM\LAMIVUDINE
     Dosage: 1 DF, QD (MAINTAINANCE PHASE)
     Route: 048
     Dates: start: 20170802, end: 20190702

REACTIONS (1)
  - Death [Fatal]

NARRATIVE: CASE EVENT DATE: 20210911
